FAERS Safety Report 24755989 (Version 1)
Quarter: 2024Q4

REPORT INFORMATION
  Report Type: Spontaneous
  Country: TR (occurrence: TR)
  Receive Date: 20241219
  Receipt Date: 20241219
  Transmission Date: 20250115
  Serious: Yes (Death, Other)
  Sender: ABBVIE
  Company Number: TR-ABBVIE-6053160

PATIENT
  Age: 74 Year

DRUGS (1)
  1. VENETOCLAX [Suspect]
     Active Substance: VENETOCLAX
     Indication: Acute myeloid leukaemia
     Route: 048
     Dates: start: 2018

REACTIONS (7)
  - Leukopenia [Fatal]
  - Acute myeloid leukaemia recurrent [Fatal]
  - COVID-19 [Fatal]
  - Thrombocytopenia [Fatal]
  - Thrombotic microangiopathy [Fatal]
  - Off label use [Unknown]
  - Therapeutic product effect decreased [Unknown]
